FAERS Safety Report 8230517-3 (Version None)
Quarter: 2012Q1

REPORT INFORMATION
  Report Type: 
  Country: None (occurrence: None)
  Receive Date: 20120323
  Receipt Date: 20120315
  Transmission Date: 20120608
  Serious: Yes (Other)
  Sender: FDA-Public Use
  Company Number: US-US-EMD SERONO, INC.-7119834

PATIENT
  Sex: Female

DRUGS (4)
  1. UNSPECIFIED MEDICATIONS [Concomitant]
     Indication: INSOMNIA
  2. REBIF [Suspect]
     Indication: MULTIPLE SCLEROSIS
     Route: 058
     Dates: start: 20120223
  3. IBUPROFEN [Concomitant]
     Indication: PREMEDICATION
  4. TRAZODONE HCL [Concomitant]
     Indication: INSOMNIA
     Dates: start: 20120314

REACTIONS (2)
  - OPTIC NEUROPATHY [None]
  - INFLUENZA LIKE ILLNESS [None]
